FAERS Safety Report 5984821-X (Version None)
Quarter: 2008Q4

REPORT INFORMATION
  Report Type: 
  Country: None (occurrence: None)
  Receive Date: 20081202
  Receipt Date: 20081114
  Transmission Date: 20090506
  Serious: Yes (Other)
  Sender: FDA-Public Use
  Company Number: 20080327

PATIENT
  Age: 37 Year
  Sex: Female

DRUGS (1)
  1. VENOFER [Suspect]
     Indication: IRON DEFICIENCY ANAEMIA
     Dosage: TOTAL 8 INFUSIONS @ 100 MG INTRAVENOUS
     Route: 042
     Dates: start: 20060401, end: 20060524

REACTIONS (4)
  - CONSTIPATION [None]
  - DIARRHOEA [None]
  - INTERNATIONAL NORMALISED RATIO FLUCTUATION [None]
  - TREATMENT NONCOMPLIANCE [None]
